FAERS Safety Report 7708376-4 (Version None)
Quarter: 2011Q3

REPORT INFORMATION
  Report Type: 
  Country: None (occurrence: None)
  Receive Date: 20110825
  Receipt Date: 20101214
  Transmission Date: 20111222
  Serious: No
  Sender: FDA-Public Use
  Company Number: US-BAYER-2011-000483

PATIENT
  Sex: Female

DRUGS (1)
  1. MIRENA [Suspect]
     Dosage: 20 MCG/24HR, QD
     Route: 015
     Dates: start: 20100101

REACTIONS (8)
  - DYSMENORRHOEA [None]
  - MUSCLE SPASMS [None]
  - MENORRHAGIA [None]
  - ABDOMINAL DISTENSION [None]
  - WEIGHT INCREASED [None]
  - DEPRESSION [None]
  - MOOD ALTERED [None]
  - HYPOMENORRHOEA [None]
